FAERS Safety Report 8344378-5 (Version None)
Quarter: 2012Q2

REPORT INFORMATION
  Report Type: 
  Country: None (occurrence: None)
  Receive Date: 20120508
  Receipt Date: 20120501
  Transmission Date: 20120825
  Serious: Yes (Other)
  Sender: FDA-Public Use
  Company Number: US-BAYER-2012-043809

PATIENT
  Age: 31 Year
  Sex: Female

DRUGS (17)
  1. YAZ [Suspect]
  2. DROSPIRENONE AND ETHINYL ESTRADIOL [Suspect]
  3. MACROBID [Concomitant]
     Dosage: 100 MG, UNK
     Route: 048
     Dates: start: 20101115
  4. PHENERGAN [Concomitant]
     Indication: NAUSEA
  5. PHENERGAN [Concomitant]
     Indication: VOMITING
  6. CIPROFLOXACIN HCL [Concomitant]
     Indication: URETHRITIS
  7. POTASSIUM CHLORIDE [Concomitant]
     Route: 048
  8. NSAID'S [Concomitant]
     Indication: PYREXIA
     Dosage: UNK
     Dates: start: 20101213
  9. MIDRIN [Concomitant]
     Dosage: 35 MG, UNK
     Route: 048
  10. MIDRIN [Concomitant]
     Dosage: 100 MG, UNK
     Route: 048
  11. IMITREX [Concomitant]
  12. IMODIUM A-D [Concomitant]
     Indication: DIARRHOEA
     Dosage: 2 MG, UNK
     Route: 048
     Dates: start: 20101213
  13. NAPROSYN [Concomitant]
     Indication: HEADACHE
  14. ZOFRAN [Concomitant]
  15. MIDRIN [Concomitant]
     Dosage: 325 MG, UNK
     Route: 048
  16. TYLENOL (CAPLET) [Concomitant]
     Indication: PYREXIA
     Dosage: UNK
     Dates: start: 20101213
  17. PROMETHAZINE [Concomitant]
     Dosage: 25 MG, UNK
     Route: 048

REACTIONS (1)
  - CEREBROVASCULAR ACCIDENT [None]
